FAERS Safety Report 6045540-7 (Version None)
Quarter: 2009Q1

REPORT INFORMATION
  Report Type: 
  Country: None (occurrence: None)
  Receive Date: 20090121
  Receipt Date: 20090116
  Transmission Date: 20090719
  Serious: Yes (Hospitalization)
  Sender: FDA-Public Use
  Company Number: B0554535A

PATIENT
  Age: 42 Year
  Sex: Female

DRUGS (2)
  1. ZOVIRAX [Suspect]
     Dosage: 1G THREE TIMES PER DAY
     Route: 042
     Dates: start: 20080618, end: 20080626
  2. CLAMOXYL [Concomitant]
     Dosage: 12G PER DAY
     Route: 042
     Dates: start: 20080618

REACTIONS (3)
  - BACK PAIN [None]
  - HAEMATURIA [None]
  - RENAL FAILURE ACUTE [None]
